FAERS Safety Report 20870820 (Version 1)
Quarter: 2022Q2

REPORT INFORMATION
  Report Type: Spontaneous
  Country: FR (occurrence: FR)
  Receive Date: 20220525
  Receipt Date: 20220525
  Transmission Date: 20220721
  Serious: Yes (Hospitalization, Other)
  Sender: FDA-Public Use
  Company Number: FR-AFSSAPS-LY20212389

PATIENT
  Age: 91 Year
  Sex: Female
  Weight: 58 kg

DRUGS (12)
  1. CLARITHROMYCIN [Suspect]
     Active Substance: CLARITHROMYCIN
     Indication: Prophylaxis
     Dosage: 1000 MILLIGRAM, DAILY
     Route: 048
     Dates: start: 20210301, end: 20210307
  2. MODURETIC, scored tablet [Concomitant]
     Indication: Product used for unknown indication
     Dosage: 2.5 MILLIGRAM, DAILY
     Route: 048
     Dates: end: 20210310
  3. ALPRAZOLAM [Concomitant]
     Active Substance: ALPRAZOLAM
     Indication: Product used for unknown indication
     Dosage: 0.12 MILLIGRAM, DAILY
     Route: 048
  4. METEOXANE, capsule [Concomitant]
     Indication: Product used for unknown indication
     Dosage: 375 MILLIGRAM, DAILY
     Route: 048
  5. GAVISCON [Concomitant]
     Active Substance: ALUMINUM HYDROXIDE\MAGNESIUM CARBONATE
     Indication: Product used for unknown indication
     Dosage: 500 MILLIGRAM, DAILY
     Route: 048
  6. TARKA LP, prolonged-release capsule [Concomitant]
     Indication: Product used for unknown indication
     Dosage: 240 MILLIGRAM, DAILY
     Route: 048
     Dates: end: 20210310
  7. ESCITALOPRAM [Concomitant]
     Active Substance: ESCITALOPRAM OXALATE
     Indication: Product used for unknown indication
     Dosage: 10 MILLIGRAM, DAILY
     Route: 048
  8. KARDEGIC [Concomitant]
     Active Substance: ASPIRIN DL-LYSINE
     Indication: Product used for unknown indication
     Dosage: 75 MILLIGRAM, DAILY
     Route: 048
  9. LANSOPRAZOLE [Concomitant]
     Active Substance: LANSOPRAZOLE
     Indication: Product used for unknown indication
     Dosage: 30 MILLIGRAM, DAILY
     Route: 048
  10. VOGALENE [Concomitant]
     Active Substance: METOPIMAZINE
     Indication: Product used for unknown indication
     Dosage: ()
     Route: 048
  11. MICROLAX, rectal solution in a single-dose container [Concomitant]
     Indication: Product used for unknown indication
     Dosage: 1 DOSAGE FORM, DAILY
     Route: 054
  12. MOVICOL, powder for oral solution in sachet [Concomitant]
     Indication: Product used for unknown indication
     Dosage: 40 MILLIGRAM, DAILY
     Route: 048

REACTIONS (3)
  - Diarrhoea [Recovered/Resolved]
  - Hepatic cytolysis [Recovered/Resolved]
  - Acute kidney injury [Recovered/Resolved]

NARRATIVE: CASE EVENT DATE: 20210301
